FAERS Safety Report 8477490-0 (Version None)
Quarter: 2012Q2

REPORT INFORMATION
  Report Type: 
  Country: None (occurrence: None)
  Receive Date: 20120629
  Receipt Date: 20120627
  Transmission Date: 20120825
  Serious: Yes (Death, Other)
  Sender: FDA-Public Use
  Company Number: PHEH2012US010219

PATIENT
  Sex: Male

DRUGS (12)
  1. HUMULIN 70/30 [Concomitant]
     Route: 058
  2. ASPIRIN [Concomitant]
     Dosage: 81 MG, UNK
     Route: 047
  3. ZETIA [Concomitant]
     Dosage: 10 MG DAILY
     Route: 048
  4. ALLOPURINOL [Concomitant]
     Dosage: 100 MG DAILY
     Route: 048
  5. FUROSEMIDE [Concomitant]
     Dosage: 80 MG DAILY
     Route: 048
  6. CRESTOR [Concomitant]
     Dosage: 5 MG DAILY
     Route: 048
  7. XANAX [Concomitant]
     Dosage: 0.5 MG, PRN
     Route: 048
  8. HECTOROL [Concomitant]
     Dosage: 1 UG DAILY ON MONDAY, WEDNESDAY AND FRIDAY
     Route: 048
  9. GLEEVEC [Suspect]
     Indication: CHRONIC MYELOID LEUKAEMIA
     Dosage: 100 MG, QD
     Route: 048
  10. LEVOTHYROXINE [Concomitant]
     Dosage: 150 UG DAILY
     Route: 048
  11. DIGOXIN [Concomitant]
     Dosage: 0.125 MG DAILYON MONDAY, WEDNESDAY AND FRIDAY
     Route: 048
  12. METOPROLOL TARTRATE [Concomitant]
     Dosage: 50 MG DAILY
     Route: 048

REACTIONS (16)
  - GLOMERULAR FILTRATION RATE DECREASED [None]
  - THROMBOCYTOPENIA [None]
  - ASCITES [None]
  - DEATH [None]
  - FATIGUE [None]
  - ABDOMINAL DISTENSION [None]
  - BLOOD CREATININE INCREASED [None]
  - OEDEMA [None]
  - BODY TEMPERATURE DECREASED [None]
  - OEDEMA PERIPHERAL [None]
  - BREATH SOUNDS ABNORMAL [None]
  - WEIGHT INCREASED [None]
  - SKIN FRAGILITY [None]
  - BLOOD PRESSURE DECREASED [None]
  - DYSPNOEA EXERTIONAL [None]
  - ECCHYMOSIS [None]
